FAERS Safety Report 4634629-2 (Version None)
Quarter: 2005Q2

REPORT INFORMATION
  Report Type: 
  Country: None (occurrence: None)
  Receive Date: 20050413
  Receipt Date: 20050328
  Transmission Date: 20051028
  Serious: Yes (Hospitalization, Other)
  Sender: FDA-Public Use
  Company Number: 2005041334

PATIENT
  Age: 43 Year
  Sex: Female
  Weight: 54.5 kg

DRUGS (6)
  1. AZULFIDINE EN-TABS [Suspect]
     Indication: RHEUMATOID ARTHRITIS
     Dosage: 1 GRM (500 MG, 2 IN 1 D), ORAL
     Route: 048
     Dates: start: 20050209, end: 20050221
  2. LAFUTIDINE (LAFUTIDINE) [Concomitant]
  3. PHELLOBERIN A (BERBERINE HYDROCHLORIDE, CARMELLOSE SODIUM, CLIOQUINOL) [Concomitant]
  4. TIQUIZIUM BROMIDE (TIQUIZIUM BROMIDE) [Concomitant]
  5. LOPERAMIDE HYDROCHLORIDE [Concomitant]
  6. VALSARTAN [Concomitant]

REACTIONS (9)
  - EXANTHEM [None]
  - HEPATIC FUNCTION ABNORMAL [None]
  - INFECTIOUS MONONUCLEOSIS [None]
  - LYMPHADENOPATHY [None]
  - LYMPHOCYTE MORPHOLOGY ABNORMAL [None]
  - MALAISE [None]
  - PHARYNGOLARYNGEAL PAIN [None]
  - PYREXIA [None]
  - SPLENOMEGALY [None]
